FAERS Safety Report 13409663 (Version 4)
Quarter: 2023Q1

REPORT INFORMATION
  Report Type: Spontaneous
  Country: US (occurrence: US)
  Receive Date: 20170406
  Receipt Date: 20230203
  Transmission Date: 20230418
  Serious: No
  Sender: FDA-Public Use
  Company Number: US-JNJFOC-20170206161

PATIENT
  Age: 8 Year
  Sex: Male

DRUGS (8)
  1. RISPERDAL [Suspect]
     Active Substance: RISPERIDONE
     Indication: Oppositional defiant disorder
     Route: 048
     Dates: start: 20060220, end: 20060327
  2. RISPERDAL [Suspect]
     Active Substance: RISPERIDONE
     Indication: Attention deficit hyperactivity disorder
     Route: 048
     Dates: start: 20060824, end: 20060825
  3. RISPERDAL [Suspect]
     Active Substance: RISPERIDONE
     Indication: Tic
     Route: 048
     Dates: start: 20100816, end: 20111206
  4. RISPERDAL [Suspect]
     Active Substance: RISPERIDONE
     Indication: Tourette^s disorder
     Route: 048
  5. RISPERIDONE [Suspect]
     Active Substance: RISPERIDONE
     Indication: Oppositional defiant disorder
     Route: 048
     Dates: start: 20100609, end: 20120304
  6. RISPERIDONE [Suspect]
     Active Substance: RISPERIDONE
     Indication: Attention deficit hyperactivity disorder
  7. RISPERIDONE [Suspect]
     Active Substance: RISPERIDONE
     Indication: Tic
  8. RISPERIDONE [Suspect]
     Active Substance: RISPERIDONE
     Indication: Tourette^s disorder

REACTIONS (5)
  - Overweight [Unknown]
  - Gynaecomastia [Unknown]
  - Emotional distress [Unknown]
  - Off label use [Unknown]
  - Product use in unapproved indication [Unknown]

NARRATIVE: CASE EVENT DATE: 20060220
